FAERS Safety Report 5721398-8 (Version None)
Quarter: 2008Q2

REPORT INFORMATION
  Report Type: 
  Country: None (occurrence: None)
  Receive Date: 20080429
  Receipt Date: 20080421
  Transmission Date: 20081010
  Serious: Yes (Death)
  Sender: FDA-Public Use
  Company Number: US-BAXTER-2008BH003925

PATIENT
  Sex: Female

DRUGS (5)
  1. REGLAN [Suspect]
     Indication: ABDOMINAL PAIN UPPER
     Route: 042
     Dates: start: 20050914, end: 20050915
  2. REGLAN [Suspect]
     Route: 048
     Dates: start: 20050915
  3. METOCLOPRAMIDE [Suspect]
     Indication: ABDOMINAL PAIN UPPER
     Route: 042
     Dates: start: 20050914, end: 20050915
  4. METOCLOPRAMIDE [Suspect]
     Route: 048
     Dates: start: 20050915
  5. METOCLOPRAMIDE HYDROCHLORIDE [Suspect]
     Indication: ABDOMINAL PAIN UPPER
     Route: 048
     Dates: start: 20050915

REACTIONS (5)
  - AKATHISIA [None]
  - COMPLETED SUICIDE [None]
  - DYSKINESIA [None]
  - SUICIDAL IDEATION [None]
  - TREMOR [None]
